FAERS Safety Report 4441662-2 (Version None)
Quarter: 2004Q3

REPORT INFORMATION
  Report Type: 
  Country: None (occurrence: None)
  Receive Date: 20040903
  Receipt Date: 20040818
  Transmission Date: 20050211
  Serious: Yes (Death)
  Sender: FDA-Public Use
  Company Number: 2004-DE-04432GD

PATIENT
  Age: 42 Year
  Sex: Female

DRUGS (3)
  1. CODEINE(CODEINE) [Suspect]
  2. OLANZAPINE [Suspect]
  3. PARACETAMOL [Concomitant]

REACTIONS (1)
  - DRUG TOXICITY [None]
